FAERS Safety Report 4422787-4 (Version None)
Quarter: 2004Q3

REPORT INFORMATION
  Report Type: 
  Country: None (occurrence: None)
  Receive Date: 20040719
  Receipt Date: 20031210
  Transmission Date: 20050211
  Serious: Yes (Life-Threatening, Hospitalization)
  Sender: FDA-Public Use
  Company Number: M03-INT-125

PATIENT
  Age: 79 Year
  Sex: Male
  Weight: 77 kg

DRUGS (5)
  1. INTEGRILIN [Suspect]
     Indication: CORONARY ANGIOPLASTY
     Dosage: 180 MCG, IV BOLUS; SEE IMAGE
     Route: 040
     Dates: start: 20031208, end: 20031208
  2. INTEGRILIN [Suspect]
     Indication: CORONARY ANGIOPLASTY
     Dosage: 180 MCG, IV BOLUS; SEE IMAGE
     Route: 040
     Dates: start: 20031208, end: 20031209
  3. HEPARIN [Concomitant]
  4. PLAVIX [Concomitant]
  5. SALICYLIC ACID [Concomitant]

REACTIONS (1)
  - HAEMORRHAGE INTRACRANIAL [None]
